FAERS Safety Report 20054319 (Version 1)
Quarter: 2021Q4

REPORT INFORMATION
  Report Type: Spontaneous
  Country: CN (occurrence: CN)
  Receive Date: 20211110
  Receipt Date: 20211110
  Transmission Date: 20220303
  Serious: Yes (Other)
  Sender: FDA-Public Use
  Company Number: None

PATIENT
  Age: 38 Year
  Sex: Female
  Weight: 51 kg

DRUGS (3)
  1. METOPROLOL [Suspect]
     Active Substance: METOPROLOL
     Route: 048
     Dates: start: 20210811, end: 20211008
  2. LEUCOGEN [Suspect]
     Active Substance: LEUCOGEN
     Route: 048
     Dates: start: 20210811, end: 20211008
  3. METHIMAZOLE [Suspect]
     Active Substance: METHIMAZOLE
     Route: 048
     Dates: start: 20210811, end: 20211008

REACTIONS (3)
  - Pruritus [Recovered/Resolved]
  - Drug-induced liver injury [Recovered/Resolved]
  - Product use in unapproved indication [Recovered/Resolved]

NARRATIVE: CASE EVENT DATE: 20210811
